FAERS Safety Report 7587188-9 (Version None)
Quarter: 2011Q3

REPORT INFORMATION
  Report Type: 
  Country: None (occurrence: None)
  Receive Date: 20110701
  Receipt Date: 20110629
  Transmission Date: 20111222
  Serious: Yes (Other)
  Sender: FDA-Public Use
  Company Number: GB-UCBSA-036264

PATIENT
  Age: 57 Year
  Sex: Male
  Weight: 90 kg

DRUGS (3)
  1. LAMOTRIGINE [Concomitant]
     Indication: CONVULSION
     Route: 048
  2. LACOSAMIDE [Suspect]
     Indication: CONVULSION
     Route: 048
     Dates: start: 20110528, end: 20110531
  3. LEVETIRACETAM [Concomitant]
     Indication: CONVULSION
     Route: 048

REACTIONS (1)
  - CHEST PAIN [None]
